FAERS Safety Report 23975724 (Version 2)
Quarter: 2024Q3

REPORT INFORMATION
  Report Type: Spontaneous
  Country: JP (occurrence: JP)
  Receive Date: 20240614
  Receipt Date: 20240720
  Transmission Date: 20241017
  Serious: Yes (Disabling, Other)
  Sender: NOVARTIS
  Company Number: JP-002147023-NVSJ2024JP007000

PATIENT
  Age: 10 Year
  Sex: Male

DRUGS (1)
  1. CYCLOSPORINE [Suspect]
     Active Substance: CYCLOSPORINE
     Indication: Haemophagocytic lymphohistiocytosis
     Dosage: UNK
     Route: 041

REACTIONS (7)
  - Aspartate aminotransferase increased [Recovered/Resolved]
  - Alanine aminotransferase increased [Recovered/Resolved]
  - Platelet count decreased [Recovered/Resolved]
  - Pyrexia [Unknown]
  - Arthralgia [Unknown]
  - Drug ineffective for unapproved indication [Unknown]
  - Off label use [Unknown]
